FAERS Safety Report 9507936 (Version 2)
Quarter: 2013Q3

REPORT INFORMATION
  Report Type: Spontaneous
  Country: DE (occurrence: DE)
  Receive Date: 20130909
  Receipt Date: 20130909
  Transmission Date: 20140515
  Serious: Yes (Other)
  Sender: FDA-Public Use
  Company Number: PHHY2013DE078368

PATIENT
  Sex: Female

DRUGS (3)
  1. VOLTAREN RESINAT 20 KAP [Suspect]
     Indication: POLYMYALGIA RHEUMATICA
     Dosage: 1 DF, QD
     Route: 048
     Dates: end: 20130718
  2. VOLTAREN RESINAT 20 KAP [Suspect]
     Dosage: UNK UKN, UNK
     Route: 048
     Dates: start: 2013, end: 201308
  3. PREDNISOLONE [Concomitant]
     Dosage: 20 MG, QD
     Dates: start: 201308

REACTIONS (5)
  - C-reactive protein increased [Unknown]
  - Red blood cell sedimentation rate increased [Unknown]
  - Hepatic enzyme increased [Unknown]
  - Gamma-glutamyltransferase increased [Unknown]
  - Alanine aminotransferase increased [Unknown]
